FAERS Safety Report 15650978 (Version 1)
Quarter: 2018Q4

REPORT INFORMATION
  Report Type: Spontaneous
  Country: US (occurrence: US)
  Receive Date: 20181123
  Receipt Date: 20181123
  Transmission Date: 20190205
  Serious: No
  Sender: FDA-Public Use
  Company Number: US-BRISTOL-MYERS SQUIBB COMPANY-BMS-2018-110350

PATIENT

DRUGS (1)
  1. YERVOY [Suspect]
     Active Substance: IPILIMUMAB
     Indication: SARCOMA
     Dosage: UNAVAILABLE
     Route: 065

REACTIONS (2)
  - Product preparation issue [Unknown]
  - Product use in unapproved indication [Unknown]
